FAERS Safety Report 21727587 (Version 2)
Quarter: 2022Q4

REPORT INFORMATION
  Report Type: Report from Study
  Country: AU (occurrence: AU)
  Receive Date: 20221214
  Receipt Date: 20221216
  Transmission Date: 20230113
  Serious: Yes (Other)
  Sender: FDA-Public Use
  Company Number: AU-BAYER-2022A168829

PATIENT
  Sex: Female

DRUGS (1)
  1. EYLEA [Suspect]
     Active Substance: AFLIBERCEPT
     Indication: Neovascular age-related macular degeneration
     Dosage: SOLUTION FOR INJECTION,STRENGTH:40 MG/ML
     Route: 031

REACTIONS (5)
  - Dyschromatopsia [Not Recovered/Not Resolved]
  - Product dose omission issue [Unknown]
  - Impaired driving ability [Not Recovered/Not Resolved]
  - Insomnia [Unknown]
  - Injection site pain [Unknown]
